FAERS Safety Report 9695695 (Version 1)
Quarter: 2013Q4

REPORT INFORMATION
  Report Type: Spontaneous
  Country: US (occurrence: US)
  Receive Date: 20131119
  Receipt Date: 20131119
  Transmission Date: 20140711
  Serious: Yes (Hospitalization)
  Sender: FDA-Public Use
  Company Number: US-B.I. PHARMACEUTICALS,INC./RIDGEFIELD-2013-BI-37174BP

PATIENT
  Sex: Male
  Weight: 68 kg

DRUGS (3)
  1. COMBIVENT [Suspect]
     Indication: DYSPNOEA
     Dosage: STRENGTH: 18 MCG / 103 MCG; DAILY DOSE: 216 MCG/1236MCG
     Route: 055
     Dates: start: 2003
  2. ALBUTEROL [Concomitant]
     Indication: UNEVALUABLE EVENT
  3. ADVAIR [Concomitant]

REACTIONS (4)
  - Lung infection [Recovered/Resolved]
  - Respiratory acidosis [Recovered/Resolved]
  - Dyspnoea [Not Recovered/Not Resolved]
  - Off label use [Not Recovered/Not Resolved]
